FAERS Safety Report 7324806-4 (Version None)
Quarter: 2011Q1

REPORT INFORMATION
  Report Type: 
  Country: None (occurrence: None)
  Receive Date: 20110301
  Receipt Date: 20110217
  Transmission Date: 20110831
  Serious: Yes (Hospitalization)
  Sender: FDA-Public Use
  Company Number: US-ELI_LILLY_AND_COMPANY-US201011002369

PATIENT
  Age: 80 Year
  Sex: Female

DRUGS (16)
  1. AMITIZA [Concomitant]
     Indication: INTESTINAL FUNCTIONAL DISORDER
     Dosage: 24 MG, 2/D
  2. CICLOPIROX [Concomitant]
     Dosage: UNK, AS NEEDED
  3. ELIDEL [Concomitant]
     Dosage: UNK, AS NEEDED
  4. FORTEO [Suspect]
     Indication: OSTEOPOROSIS
     Dosage: 20 UG, DAILY (1/D)
  5. FUROSEMIDE [Concomitant]
     Dosage: 20 MG, 2/D
  6. CLOBETASOL PROPIONATE [Concomitant]
     Dosage: UNK, AS NEEDED
  7. ASPIRIN [Concomitant]
     Dosage: 325 MG, UNK
  8. CARBIDOL [Concomitant]
     Dosage: 3.125 MG, 2/D
  9. HYDROXYZINE [Concomitant]
     Dosage: UNK, AS NEEDED
  10. CALCIUM VIT D [Concomitant]
     Dosage: 1 D/F, 2/D
  11. VITAMIN B-12 [Concomitant]
     Dosage: 1000 UG, DAILY (1/D)
  12. VITAMIN D [Concomitant]
     Dosage: 1000 U, 2/D
  13. LEVOTHYROXINE [Concomitant]
     Dosage: 88 UG, DAILY (1/D)
  14. XANAX [Concomitant]
     Dosage: 150 MG, DAILY (1/D)
  15. FLUOCINONIDE [Concomitant]
     Dosage: UNK, AS NEEDED
  16. TRIAMCINOLONE [Concomitant]
     Dosage: UNK, AS NEEDED

REACTIONS (4)
  - HEART RATE INCREASED [None]
  - ATRIAL FIBRILLATION [None]
  - INJECTION SITE PAIN [None]
  - CARDIAC FAILURE CONGESTIVE [None]
